FAERS Safety Report 6574714 (Version 2)
Quarter: 2013Q2

REPORT INFORMATION
  Report Type: Spontaneous
  Country: US (occurrence: US)
  Receive Date: 20080310
  Receipt Date: 20130404
  Transmission Date: 20140414
  Serious: Yes (Hospitalization, Other)
  Sender: FDA-Public Use
  Company Number: US-BRISTOL-MYERS SQUIBB COMPANY-14100135

PATIENT
  Sex: Female

DRUGS (3)
  1. GLUCOPHAGE [Suspect]
  2. BYETTA [Suspect]
  3. PRILOSEC [Suspect]

REACTIONS (4)
  - Encephalitis [Unknown]
  - Hypoglycaemia [Unknown]
  - Diarrhoea [Unknown]
  - Abdominal pain upper [Unknown]
